FAERS Safety Report 5842574-X (Version None)
Quarter: 2008Q3

REPORT INFORMATION
  Report Type: 
  Country: None (occurrence: None)
  Receive Date: 20080812
  Receipt Date: 20080731
  Transmission Date: 20090109
  Serious: Yes (Other)
  Sender: FDA-Public Use
  Company Number: GB-PFIZER INC-2008064732

PATIENT
  Age: 32 Year
  Sex: Male
  Weight: 76 kg

DRUGS (3)
  1. CHANTIX [Suspect]
     Indication: SMOKING CESSATION THERAPY
     Route: 048
     Dates: start: 20070912, end: 20071108
  2. ALVERINE CITRATE [Concomitant]
     Indication: IRRITABLE BOWEL SYNDROME
     Route: 048
  3. MEBEVERINE [Concomitant]
     Indication: IRRITABLE BOWEL SYNDROME
     Route: 048

REACTIONS (3)
  - DEPRESSED MOOD [None]
  - INSOMNIA [None]
  - TEARFULNESS [None]
